FAERS Safety Report 17621519 (Version 1)
Quarter: 2020Q2

REPORT INFORMATION
  Report Type: Spontaneous
  Country: US (occurrence: US)
  Receive Date: 20200403
  Receipt Date: 20200403
  Transmission Date: 20200713
  Serious: Yes (Other)
  Sender: FDA-Public Use
  Company Number: US-TORRENT-00010136

PATIENT
  Age: 65 Year
  Sex: Female

DRUGS (4)
  1. OMNIPAQUE [Suspect]
     Active Substance: IOHEXOL
     Indication: BACK PAIN
     Dosage: SOLUTION
     Route: 042
  2. METHYLPREDNISOLONE. [Suspect]
     Active Substance: METHYLPREDNISOLONE
     Indication: BACK PAIN
     Route: 008
  3. TOPIRAMATE. [Suspect]
     Active Substance: TOPIRAMATE
     Indication: RADICULAR PAIN
     Dosage: INCREASED TO 50 MG IN MONTH 3
  4. LIDOCAINE. [Suspect]
     Active Substance: LIDOCAINE
     Indication: BACK PAIN
     Route: 008

REACTIONS (5)
  - Tremor [Recovered/Resolved]
  - Drug dependence [Recovered/Resolved]
  - Therapeutic response decreased [Unknown]
  - Withdrawal syndrome [Recovered/Resolved]
  - Myalgia [Recovered/Resolved]
